FAERS Safety Report 14808554 (Version 1)
Quarter: 2018Q2

REPORT INFORMATION
  Report Type: Report from Study
  Country: US (occurrence: US)
  Receive Date: 20180425
  Receipt Date: 20180425
  Transmission Date: 20180711
  Serious: No
  Sender: FDA-Public Use
  Company Number: US-AMGEN-USASL2018018681

PATIENT
  Sex: Male

DRUGS (1)
  1. REPATHA [Suspect]
     Active Substance: EVOLOCUMAB
     Indication: BLOOD CHOLESTEROL INCREASED
     Dosage: 140 MG, Q2WK
     Route: 065

REACTIONS (5)
  - False positive tuberculosis test [Not Recovered/Not Resolved]
  - Hepatitis C virus test [Not Recovered/Not Resolved]
  - Blood creatine increased [Unknown]
  - False positive investigation result [Not Recovered/Not Resolved]
  - Injection site pain [Unknown]
